FAERS Safety Report 8934053 (Version 2)
Quarter: 2013Q1

REPORT INFORMATION
  Report Type: Spontaneous
  Country: RU (occurrence: RU)
  Receive Date: 20121129
  Receipt Date: 20130118
  Transmission Date: 20140127
  Serious: Yes (Life-Threatening, Hospitalization)
  Sender: FDA-Public Use
  Company Number: RU-PFIZER INC-2012297677

PATIENT
  Age: 62 Year
  Sex: Female

DRUGS (8)
  1. CORDARONE [Suspect]
     Indication: ATRIAL FIBRILLATION
     Dosage: 600 MG, DAILY
     Route: 048
     Dates: start: 20121023, end: 20121103
  2. CORDARONE [Suspect]
     Indication: ATRIAL FIBRILLATION
     Dosage: UNK
     Route: 042
     Dates: start: 20121020, end: 20121022
  3. ETHACIZINE [Suspect]
     Indication: ATRIAL FIBRILLATION
     Dosage: 50 MG, UNK
     Route: 048
     Dates: start: 20121105
  4. ETHACIZINE [Suspect]
     Dosage: 150 MG
  5. ACETYLSALICYLIC ACID/MAGNESIUM HYDROXIDE [Concomitant]
     Dosage: UNK
     Dates: start: 2009
  6. METOPROLOL [Concomitant]
     Dosage: UNK
     Dates: start: 2012
  7. SOTALEX [Concomitant]
     Indication: ATRIAL FIBRILLATION
     Dosage: 160 MG, UNK
     Dates: end: 201210
  8. RYTMONORM [Concomitant]
     Indication: ATRIAL FIBRILLATION
     Dosage: 150 MG, UNK
     Dates: start: 201210

REACTIONS (2)
  - Toxic skin eruption [Recovering/Resolving]
  - Vasculitis [Not Recovered/Not Resolved]
